FAERS Safety Report 7970667-X (Version None)
Quarter: 2011Q4

REPORT INFORMATION
  Report Type: 
  Country: None (occurrence: None)
  Receive Date: 20111212
  Receipt Date: 20111207
  Transmission Date: 20120403
  Serious: Yes (Death)
  Sender: FDA-Public Use
  Company Number: PHHY2011GB106769

PATIENT
  Age: 73 Year
  Sex: Female
  Weight: 41 kg

DRUGS (3)
  1. OLANZAPINE [Concomitant]
     Dosage: 2.5 MG, UNK
  2. CITALOPRAM [Suspect]
     Dosage: 40 MG, UNK
  3. MIDAZOLAM [Concomitant]

REACTIONS (2)
  - CARDIAC ARREST [None]
  - HALLUCINATION [None]
